FAERS Safety Report 13457486 (Version 3)
Quarter: 2017Q4

REPORT INFORMATION
  Report Type: Report from Study
  Country: CN (occurrence: CN)
  Receive Date: 20170419
  Receipt Date: 20171121
  Transmission Date: 20180320
  Serious: Yes (Death, Hospitalization)
  Sender: FDA-Public Use
  Company Number: CN-ROCHE-1921426

PATIENT
  Age: 65 Year
  Sex: Male
  Weight: 63 kg

DRUGS (6)
  1. OXYCODONE [Concomitant]
     Active Substance: OXYCODONE
     Indication: CANCER PAIN
     Route: 065
     Dates: start: 20170314, end: 20170402
  2. MANNITOL. [Concomitant]
     Active Substance: MANNITOL
     Indication: DEPRESSED LEVEL OF CONSCIOUSNESS
     Route: 065
     Dates: start: 20170331, end: 20170331
  3. LACTULOSE. [Concomitant]
     Active Substance: LACTULOSE
     Indication: CONSTIPATION
     Route: 048
     Dates: start: 20170320, end: 20170320
  4. ZYBAN [Concomitant]
     Active Substance: BUPROPION HYDROCHLORIDE
     Indication: CANCER PAIN
     Route: 065
     Dates: start: 20170314, end: 20170402
  5. SODIUM CHLORIDE. [Concomitant]
     Active Substance: SODIUM CHLORIDE
     Indication: HYPONATRAEMIA
     Route: 065
     Dates: start: 20170331, end: 20170331
  6. ATEZOLIZUMAB. [Suspect]
     Active Substance: ATEZOLIZUMAB
     Indication: NON-SMALL CELL LUNG CANCER
     Dosage: THE MOST RECENT DOSE OF ATEZOLIZUMAB 1200 MG PRIOR TO THE EVENT ONSET WAS ON 16/MAR/2017(C6D1).
     Route: 042
     Dates: start: 20161129

REACTIONS (1)
  - Lung infection [Recovering/Resolving]

NARRATIVE: CASE EVENT DATE: 20170401
